FAERS Safety Report 16346435 (Version 5)
Quarter: 2021Q1

REPORT INFORMATION
  Report Type: Report from Study
  Country: AU (occurrence: AU)
  Receive Date: 20190523
  Receipt Date: 20210212
  Transmission Date: 20210419
  Serious: Yes (Hospitalization, Other)
  Sender: FDA-Public Use
  Company Number: AU-TOLMAR, INC.-2019AU005151

PATIENT
  Sex: Male

DRUGS (1)
  1. ELIGARD [Suspect]
     Active Substance: LEUPROLIDE ACETATE
     Indication: PROSTATE CANCER
     Dosage: 22.5 MG, Q 3 MONTH
     Route: 058
     Dates: start: 20160815

REACTIONS (6)
  - Malignant melanoma [Unknown]
  - Fall [Unknown]
  - Arthralgia [Unknown]
  - Hot flush [Unknown]
  - Cardiac disorder [Unknown]
  - Wrist fracture [Not Recovered/Not Resolved]
